FAERS Safety Report 8748278 (Version 3)
Quarter: 2014Q2

REPORT INFORMATION
  Report Type: Spontaneous
  Country: JP (occurrence: JP)
  Receive Date: 20120827
  Receipt Date: 20131017
  Transmission Date: 20141212
  Serious: Yes (Death, Other)
  Sender: FDA-Public Use
  Company Number: JP-PFIZER INC-2012205451

PATIENT
  Age: 74 Year
  Sex: Male
  Weight: 56 kg

DRUGS (2)
  1. HYDROCORTISONE SODIUM SUCCINATE [Suspect]
     Indication: SHOCK
     Dosage: 500 MG, SINGLE
  2. METOCLOPRAMIDE [Interacting]
     Dosage: 10 MG, SINGLE

REACTIONS (3)
  - Phaeochromocytoma crisis [Fatal]
  - Multi-organ failure [Unknown]
  - Drug interaction [Unknown]
